FAERS Safety Report 13668403 (Version 1)
Quarter: 2017Q2

REPORT INFORMATION
  Report Type: Spontaneous
  Country: US (occurrence: US)
  Receive Date: 20170619
  Receipt Date: 20170619
  Transmission Date: 20170830
  Serious: Yes (Disabling)
  Sender: FDA-Public Use
  Company Number: None

PATIENT
  Age: 30 Year
  Sex: Female
  Weight: 45.9 kg

DRUGS (10)
  1. MAGNESIUM [Concomitant]
     Active Substance: MAGNESIUM
  2. KLONOPIN [Suspect]
     Active Substance: CLONAZEPAM
     Indication: PANIC ATTACK
  3. PROGRAF [Concomitant]
     Active Substance: TACROLIMUS\TACROLIMUS ANHYDROUS
  4. BIOTIN [Concomitant]
     Active Substance: BIOTIN
  5. METHYLFOATE [Concomitant]
  6. FISH OIL [Concomitant]
     Active Substance: FISH OIL
  7. METHYL B12 [Concomitant]
  8. IMURAN [Concomitant]
     Active Substance: AZATHIOPRINE
  9. PREDNISONE. [Concomitant]
     Active Substance: PREDNISONE
  10. VITAMIN D3 [Concomitant]
     Active Substance: CHOLECALCIFEROL

REACTIONS (11)
  - Dissociation [None]
  - Panic attack [None]
  - Hypertension [None]
  - Tremor [None]
  - Headache [None]
  - Insomnia [None]
  - Sleep terror [None]
  - Nervous system disorder [None]
  - Hallucination [None]
  - Withdrawal syndrome [None]
  - Tachycardia [None]

NARRATIVE: CASE EVENT DATE: 20140501
